FAERS Safety Report 9909582 (Version 2)
Quarter: 2015Q1

REPORT INFORMATION
  Report Type: Spontaneous
  Country: SE (occurrence: SE)
  Receive Date: 20140219
  Receipt Date: 20150123
  Transmission Date: 20150721
  Serious: Yes (Disabling)
  Sender: FDA-Public Use
  Company Number: SE-PFIZER INC-2014047153

PATIENT
  Age: 60 Year
  Sex: Female

DRUGS (14)
  1. LYRICA [Suspect]
     Active Substance: PREGABALIN
     Dosage: 100 MG, 2X/DAY
  2. BETOLVEX [Concomitant]
     Active Substance: CYANOCOBALAMIN
  3. ESOMEPRAZOLE [Concomitant]
     Active Substance: ESOMEPRAZOLE
  4. NAPROXEN. [Concomitant]
     Active Substance: NAPROXEN
  5. LYRICA [Suspect]
     Active Substance: PREGABALIN
     Dosage: 150 MG, 2X/DAY
     Dates: end: 201311
  6. ZOPICLONE [Concomitant]
     Active Substance: ZOPICLONE
  7. SPIRIVA [Concomitant]
     Active Substance: TIOTROPIUM BROMIDE MONOHYDRATE
  8. ATARAX [Concomitant]
     Active Substance: HYDROXYZINE\HYDROXYZINE HYDROCHLORIDE
  9. TROMBYL [Concomitant]
     Active Substance: ASPIRIN
  10. SIMVASTATIN. [Concomitant]
     Active Substance: SIMVASTATIN
  11. THERALEN [Concomitant]
     Active Substance: TRIMEPRAZINE
  12. ORALOVITE [Concomitant]
  13. VENLAFAXINE [Concomitant]
     Active Substance: VENLAFAXINE HYDROCHLORIDE
  14. PANODIL BRUS [Concomitant]

REACTIONS (2)
  - Drug withdrawal syndrome [Not Recovered/Not Resolved]
  - Oscillopsia [Not Recovered/Not Resolved]

NARRATIVE: CASE EVENT DATE: 20131201
